FAERS Safety Report 7104879-4 (Version None)
Quarter: 2010Q4

REPORT INFORMATION
  Report Type: 
  Country: None (occurrence: None)
  Receive Date: 20101116
  Receipt Date: 20101110
  Transmission Date: 20110411
  Serious: Yes (Hospitalization)
  Sender: FDA-Public Use
  Company Number: CA-BRISTOL-MYERS SQUIBB COMPANY-15382633

PATIENT
  Age: 86 Year
  Sex: Female

DRUGS (7)
  1. AVAPRO [Suspect]
     Indication: BLOOD PRESSURE
     Route: 048
     Dates: start: 20090901
  2. CITALOPRAM HYDROBROMIDE [Suspect]
     Route: 048
     Dates: start: 20101001, end: 20101101
  3. SPIRONOLACTONE [Suspect]
     Route: 048
     Dates: end: 20101101
  4. NORVASC [Concomitant]
     Indication: BLOOD PRESSURE
     Dosage: INITIAL DOSE: 10MG
     Route: 048
     Dates: start: 20100401
  5. PANTOLOC [Concomitant]
     Indication: GASTRIC DISORDER
     Dosage: PANTOLOC 40MG
     Route: 048
     Dates: start: 20100401
  6. COUMADIN [Concomitant]
     Indication: ATRIAL FIBRILLATION
     Route: 048
  7. ACEBUTOLOL [Concomitant]
     Indication: BLOOD PRESSURE
     Route: 048
     Dates: start: 20100708

REACTIONS (1)
  - HYPONATRAEMIA [None]
